FAERS Safety Report 9364739 (Version 1)
Quarter: 2013Q2

REPORT INFORMATION
  Report Type: Spontaneous
  Country: IT (occurrence: IT)
  Receive Date: 20130624
  Receipt Date: 20130624
  Transmission Date: 20140414
  Serious: Yes (Other)
  Sender: FDA-Public Use
  Company Number: IT-PFIZER INC-2013184417

PATIENT
  Age: 80 Year
  Sex: Female

DRUGS (1)
  1. LINEZOLID [Suspect]
     Indication: PNEUMONIA

REACTIONS (2)
  - Pulmonary oedema [Unknown]
  - Hypersensitivity [Unknown]
